FAERS Safety Report 4746609-7 (Version None)
Quarter: 2005Q3

REPORT INFORMATION
  Report Type: 
  Country: None (occurrence: None)
  Receive Date: 20050815
  Receipt Date: 20050729
  Transmission Date: 20060218
  Serious: Yes (Hospitalization, Other)
  Sender: FDA-Public Use
  Company Number: DE_050816579

PATIENT
  Age: 71 Year
  Sex: Female

DRUGS (8)
  1. GEMZAR [Suspect]
     Indication: PANCREATIC CARCINOMA
     Dosage: 1750 MG
     Dates: start: 20050407, end: 20050414
  2. NAVOBAN (TROPISETRON HYDROCHLORIDE) [Concomitant]
  3. CARDIAC MEDICATION [Concomitant]
  4. TOREM (TORASEMIDE SODIUM) [Concomitant]
  5. DEXAMETHASONE [Concomitant]
  6. ASPIRIN [Concomitant]
  7. DURAGESIC [Concomitant]
  8. INSULIN [Concomitant]

REACTIONS (5)
  - CEREBRAL DISORDER [None]
  - CONFUSIONAL STATE [None]
  - COORDINATION ABNORMAL [None]
  - MOVEMENT DISORDER [None]
  - RESTLESSNESS [None]
